FAERS Safety Report 5143109-X (Version None)
Quarter: 2006Q4

REPORT INFORMATION
  Report Type: 
  Country: None (occurrence: None)
  Receive Date: 20061103
  Receipt Date: 20050921
  Transmission Date: 20070319
  Serious: Yes (Death, Hospitalization)
  Sender: FDA-Public Use
  Company Number: JP-BRISTOL-MYERS SQUIBB COMPANY-13127402

PATIENT
  Age: 53 Year
  Sex: Male

DRUGS (12)
  1. ZERIT [Suspect]
     Indication: HIV INFECTION
     Dosage: THERAPY INTERRUPTED FROM 04-JAN-2004 UNTIL 03-AUG-2005
     Route: 048
     Dates: start: 19971127, end: 20051113
  2. VIRACEPT [Suspect]
     Indication: HIV INFECTION
     Dosage: THERAPY INTERRUPTED FROM 04-JAN-2004 UNTIL 03-AUG-2005
     Route: 048
     Dates: start: 19980808, end: 20051113
  3. REYATAZ [Concomitant]
     Dosage: THERAPY DISCONTINUED ON 03-NOV-2004 AND RE-STARTED ON 01-FEB-2005.
     Route: 048
     Dates: start: 20040603, end: 20050510
  4. VIDEX EC [Concomitant]
     Route: 048
     Dates: start: 20050713, end: 20050802
  5. EPIVIR [Concomitant]
     Dosage: THERAPY DISCONTINUED ON 03-NOV-2004 AND RE-STARTED ON 01-FEB-2005.
     Route: 048
     Dates: start: 20040603, end: 20051113
  6. NORVIR [Concomitant]
     Dosage: THERAPY STOPPED ON 03-NOV-2004, RE-STARTED ON 01-FEB-2005 TO 10-MAY-2005, RESTARTED 11-MAY-2005.
     Route: 048
     Dates: start: 20040603, end: 20050712
  7. VIREAD [Concomitant]
     Route: 048
     Dates: start: 20040715, end: 20041103
  8. KAKKONTO [Concomitant]
     Route: 048
     Dates: start: 20040716, end: 20050331
  9. ZIAGEN [Concomitant]
     Route: 048
     Dates: start: 20050203, end: 20050712
  10. ALLOPURINOL [Concomitant]
     Route: 048
     Dates: start: 20050201, end: 20051212
  11. LEXIVA [Concomitant]
     Route: 048
     Dates: start: 20050511, end: 20050927
  12. URSO [Concomitant]
     Route: 048
     Dates: start: 20020829, end: 20051212

REACTIONS (3)
  - HEPATIC CIRRHOSIS [None]
  - HEPATIC FUNCTION ABNORMAL [None]
  - OESOPHAGEAL VARICES HAEMORRHAGE [None]
